FAERS Safety Report 5027388-5 (Version None)
Quarter: 2006Q2

REPORT INFORMATION
  Report Type: 
  Country: None (occurrence: None)
  Receive Date: 20060501
  Receipt Date: 20060218
  Transmission Date: 20061013
  Serious: Yes (Other)
  Sender: FDA-Public Use
  Company Number: 200610959BWH

PATIENT
  Age: 68 Year
  Sex: Male
  Weight: 88.4514 kg

DRUGS (7)
  1. NEXAVAR [Suspect]
     Indication: RENAL CELL CARCINOMA STAGE UNSPECIFIED
     Dosage: 400 MG, BID, ORAL
     Route: 048
     Dates: start: 20060131, end: 20060219
  2. DOXAZOSIN [Concomitant]
  3. BENAZEPRIL HYDROCHLORIDE [Concomitant]
  4. ALLOPURINOL [Concomitant]
  5. HYDROCHLOROTHIAZIDE [Concomitant]
  6. ZOCOR [Concomitant]
  7. DILTIAZEM [Concomitant]

REACTIONS (10)
  - ANAL DISCOMFORT [None]
  - BLISTER [None]
  - BURNING SENSATION [None]
  - DIARRHOEA [None]
  - DIFFICULTY IN WALKING [None]
  - NASAL DISCOMFORT [None]
  - ORAL PAIN [None]
  - PALMAR-PLANTAR ERYTHRODYSAESTHESIA SYNDROME [None]
  - PARAESTHESIA [None]
  - STOMATITIS [None]
